FAERS Safety Report 9173935 (Version 1)
Quarter: 2013Q1

REPORT INFORMATION
  Report Type: Spontaneous
  Country: US (occurrence: US)
  Receive Date: 20130320
  Receipt Date: 20130320
  Transmission Date: 20140127
  Serious: Yes (Other)
  Sender: FDA-Public Use
  Company Number: US-SANOFI-AVENTIS-2013SA026345

PATIENT
  Sex: 0

DRUGS (2)
  1. AUBAGIO [Suspect]
     Route: 065
     Dates: start: 201301
  2. ADDERALL [Suspect]
     Route: 065
     Dates: start: 201301

REACTIONS (2)
  - Atrial fibrillation [Unknown]
  - Diarrhoea [Not Recovered/Not Resolved]
